FAERS Safety Report 8517061-0 (Version None)
Quarter: 2012Q3

REPORT INFORMATION
  Report Type: 
  Country: None (occurrence: None)
  Receive Date: 20120718
  Receipt Date: 20120712
  Transmission Date: 20120928
  Serious: Yes (Hospitalization)
  Sender: FDA-Public Use
  Company Number: US-BAYER-2012-070671

PATIENT
  Age: 30 Year
  Sex: Female
  Weight: 97.51 kg

DRUGS (3)
  1. YASMIN [Suspect]
  2. MULTI-VITAMIN [Concomitant]
  3. ALEVE [Concomitant]

REACTIONS (1)
  - PULMONARY EMBOLISM [None]
